FAERS Safety Report 14060934 (Version 2)
Quarter: 2017Q4

REPORT INFORMATION
  Report Type: Spontaneous
  Country: US (occurrence: US)
  Receive Date: 20171007
  Receipt Date: 20171018
  Transmission Date: 20180321
  Serious: Yes (Other)
  Sender: FDA-Public Use
  Company Number: US-SHILPA MEDICARE LIMITED-2029238

PATIENT
  Age: 51 Year
  Sex: Female
  Weight: 142.27 kg

DRUGS (9)
  1. DULOXETINE. [Concomitant]
     Active Substance: DULOXETINE
  2. OXYCODONE [Concomitant]
     Active Substance: OXYCODONE
  3. ASPIRIN. [Concomitant]
     Active Substance: ASPIRIN
     Dates: start: 20170828
  4. ISOSORBIDE MONONITRATE. [Concomitant]
     Active Substance: ISOSORBIDE MONONITRATE
  5. METOPROLOL. [Concomitant]
     Active Substance: METOPROLOL
  6. CAPECITABINE. [Suspect]
     Active Substance: CAPECITABINE
     Indication: GASTROINTESTINAL CARCINOMA
     Route: 048
     Dates: start: 20170504
  7. METHYLPHENIDATE. [Concomitant]
     Active Substance: METHYLPHENIDATE
  8. NAPROXEN. [Concomitant]
     Active Substance: NAPROXEN
  9. ONDANSETRON [Concomitant]
     Active Substance: ONDANSETRON

REACTIONS (8)
  - Dizziness [Unknown]
  - Chest pain [Recovered/Resolved]
  - Oral pain [Recovered/Resolved]
  - Product substitution issue [Unknown]
  - Vaginal haemorrhage [Not Recovered/Not Resolved]
  - Venous thrombosis [Unknown]
  - Dysgeusia [Recovered/Resolved]
  - Vertigo [Unknown]
